FAERS Safety Report 10785161 (Version 1)
Quarter: 2015Q1

REPORT INFORMATION
  Report Type: Spontaneous
  Country: DE (occurrence: None)
  Receive Date: 20150209
  Receipt Date: 20150209
  Transmission Date: 20150721
  Serious: Yes (Life-Threatening, Hospitalization)
  Sender: FDA-Public Use
  Company Number: NSR_01823_2015

PATIENT
  Age: 41 Year
  Sex: Male
  Weight: 85 kg

DRUGS (2)
  1. AMOXICILLIN (AMOXICILLIN ) (AMOXICILLIN) [Suspect]
     Active Substance: AMOXICILLIN
     Indication: TONSILLITIS
     Dosage: (DF)
  2. ALLOPURINOL. [Suspect]
     Active Substance: ALLOPURINOL
     Indication: HYPERURICAEMIA

REACTIONS (8)
  - Multi-organ failure [None]
  - Acute hepatic failure [None]
  - Renal failure [None]
  - Liver transplant [None]
  - Drug reaction with eosinophilia and systemic symptoms [None]
  - Tonsillitis [None]
  - Encephalopathy [None]
  - Haemofiltration [None]
